FAERS Safety Report 8460824-0 (Version None)
Quarter: 2012Q2

REPORT INFORMATION
  Report Type: 
  Country: None (occurrence: None)
  Receive Date: 20120624
  Receipt Date: 20120423
  Transmission Date: 20120825
  Serious: Yes (Death)
  Sender: FDA-Public Use
  Company Number: PHHY2008KR14580

PATIENT
  Sex: Male
  Weight: 62 kg

DRUGS (1)
  1. EXJADE [Suspect]
     Indication: APLASTIC ANAEMIA
     Dosage: 750 MG, QD (10MG/KG)
     Route: 048
     Dates: start: 20070719, end: 20080721

REACTIONS (1)
  - SEPSIS [None]
